FAERS Safety Report 9162486 (Version 1)
Quarter: 2013Q1

REPORT INFORMATION
  Report Type: Spontaneous
  Country: US (occurrence: None)
  Receive Date: 20130221
  Receipt Date: 20130221
  Transmission Date: 20140127
  Serious: Yes (Other)
  Sender: FDA-Public Use
  Company Number: 2013-02285

PATIENT
  Age: 78 Year
  Sex: 0

DRUGS (1)
  1. BCG THERAPEUTICS [Suspect]
     Indication: BLADDER CANCER
     Dosage: I.VES. NR

REACTIONS (9)
  - Dyspnoea [None]
  - Tachycardia [None]
  - Hypotension [None]
  - Pyrexia [None]
  - Septic shock [None]
  - Bovine tuberculosis [None]
  - Granuloma [None]
  - Transaminases increased [None]
  - Lung infiltration [None]
